FAERS Safety Report 18529113 (Version 3)
Quarter: 2020Q4

REPORT INFORMATION
  Report Type: Spontaneous
  Country: JP (occurrence: JP)
  Receive Date: 20201120
  Receipt Date: 20201216
  Transmission Date: 20210114
  Serious: Yes (Hospitalization)
  Sender: FDA-Public Use
  Company Number: JP-ELI_LILLY_AND_COMPANY-JP202011006692

PATIENT
  Age: 77 Year
  Sex: Female
  Weight: 65 kg

DRUGS (17)
  1. DULOXETINE HYDROCHLORIDE. [Suspect]
     Active Substance: DULOXETINE HYDROCHLORIDE
     Indication: OSTEOARTHRITIS
     Dosage: 20 MG, DAILY
     Route: 048
     Dates: start: 20170302, end: 20170606
  2. ACETAMINOPHEN. [Concomitant]
     Active Substance: ACETAMINOPHEN
     Dosage: 1200 MG, DAILY
     Route: 048
     Dates: end: 20201028
  3. LOXOPROFEN [Concomitant]
     Active Substance: LOXOPROFEN
     Dosage: 120 MG, DAILY
     Route: 048
     Dates: end: 20201028
  4. EPERISONE HYDROCHLORIDE [Concomitant]
     Active Substance: EPERISONE HYDROCHLORIDE
     Dosage: 150 MG, DAILY
     Route: 048
  5. ROSUVASTATIN. [Concomitant]
     Active Substance: ROSUVASTATIN
     Indication: HYPERTENSION
     Dosage: 2.5 MG, DAILY
     Route: 048
  6. VESICARE [Concomitant]
     Active Substance: SOLIFENACIN SUCCINATE
     Indication: HYPERTONIC BLADDER
     Dosage: 5 MG, DAILY
     Route: 048
  7. TEPRENONE [Concomitant]
     Active Substance: TEPRENONE
     Dosage: 100 MG, DAILY
     Route: 048
  8. LIMAPROST ALFADEX [Concomitant]
     Active Substance: LIMAPROST
     Dosage: 10 MG, DAILY
     Route: 048
  9. ROSUVASTATIN. [Concomitant]
     Active Substance: ROSUVASTATIN
     Indication: HYPERLIPIDAEMIA
  10. OLMESARTAN [Concomitant]
     Active Substance: OLMESARTAN
     Indication: HYPERTENSION
     Dosage: 20 MG, DAILY
     Route: 048
     Dates: end: 20201110
  11. TAKECAB [Concomitant]
     Active Substance: VONOPRAZAN FUMARATE
     Dosage: 10 MG, DAILY
     Route: 048
  12. DULOXETINE HYDROCHLORIDE. [Suspect]
     Active Substance: DULOXETINE HYDROCHLORIDE
     Dosage: 60 MG, DAILY
     Route: 048
     Dates: start: 20191021, end: 20201102
  13. OLMESARTAN [Concomitant]
     Active Substance: OLMESARTAN
     Indication: HYPERLIPIDAEMIA
  14. VESICARE [Concomitant]
     Active Substance: SOLIFENACIN SUCCINATE
     Dosage: 10 UNK
     Route: 048
  15. DULOXETINE HYDROCHLORIDE. [Suspect]
     Active Substance: DULOXETINE HYDROCHLORIDE
     Indication: LUMBAR SPINAL STENOSIS
     Dosage: 40 MG, DAILY
     Route: 048
     Dates: start: 20170607, end: 20191020
  16. SALAZOSULFAPYRIDINE [Concomitant]
     Active Substance: SULFASALAZINE
     Dosage: 1000 MG, DAILY
     Route: 048
     Dates: start: 20200830, end: 20201102
  17. TARLIGE [Concomitant]
     Active Substance: MIROGABALIN BESYLATE
     Dosage: 10 MG, DAILY
     Route: 048
     Dates: end: 20201102

REACTIONS (3)
  - Insomnia [Not Recovered/Not Resolved]
  - Neuroleptic malignant syndrome [Recovering/Resolving]
  - Pyelonephritis [Recovered/Resolved]

NARRATIVE: CASE EVENT DATE: 202008
